FAERS Safety Report 5062345-4 (Version None)
Quarter: 2006Q3

REPORT INFORMATION
  Report Type: 
  Country: None (occurrence: None)
  Receive Date: 20060726
  Receipt Date: 20060724
  Transmission Date: 20061208
  Serious: Yes (Other)
  Sender: FDA-Public Use
  Company Number: US-GLAXOSMITHKLINE-A0604259B

PATIENT
  Age: 32 Year
  Sex: Female

DRUGS (16)
  1. WELLBUTRIN XL [Suspect]
     Indication: DRUG USE FOR UNKNOWN INDICATION
     Dosage: 150MG PER DAY
     Route: 048
     Dates: start: 20050511
  2. VALPROIC ACID [Concomitant]
  3. TRILEPTAL [Concomitant]
  4. KLONOPIN [Concomitant]
  5. PAXIL [Concomitant]
  6. XANAX [Concomitant]
  7. SYNTHROID [Concomitant]
  8. PRENATAL VITAMINS [Concomitant]
  9. IMITREX [Concomitant]
  10. FLEXERIL [Concomitant]
  11. AMBIEN [Concomitant]
  12. ATENOLOL [Concomitant]
     Indication: MIGRAINE PROPHYLAXIS
  13. LORTAB [Concomitant]
  14. LEXAPRO [Concomitant]
  15. INSULIN [Concomitant]
  16. SSRI [Concomitant]

REACTIONS (4)
  - DRUG EXPOSURE DURING PREGNANCY [None]
  - GESTATIONAL DIABETES [None]
  - INDUCED LABOUR [None]
  - PREGNANCY [None]
